FAERS Safety Report 13867894 (Version 1)
Quarter: 2017Q3

REPORT INFORMATION
  Report Type: Report from Study
  Country: US (occurrence: US)
  Receive Date: 20170814
  Receipt Date: 20170814
  Transmission Date: 20171127
  Serious: No
  Sender: FDA-Public Use
  Company Number: US-ACADIA PHARMACEUTICALS INC.-ACA-2017-003700

PATIENT
  Age: 69 Year
  Sex: Female

DRUGS (2)
  1. NUPLAZID [Suspect]
     Active Substance: PIMAVANSERIN TARTRATE
     Indication: PARKINSON^S DISEASE
     Dosage: 34 MG, QD
     Route: 048
     Dates: start: 20170506, end: 20170509
  2. NUPLAZID [Suspect]
     Active Substance: PIMAVANSERIN TARTRATE
     Dosage: 34 MG, QD
     Route: 048
     Dates: start: 20170526, end: 201705

REACTIONS (7)
  - Drooling [Unknown]
  - Tremor [Unknown]
  - Muscular weakness [Unknown]
  - Dizziness [Unknown]
  - Hallucination [Unknown]
  - Myalgia [Unknown]
  - Gait disturbance [Unknown]

NARRATIVE: CASE EVENT DATE: 201705
